FAERS Safety Report 13232528 (Version 1)
Quarter: 2017Q1

REPORT INFORMATION
  Report Type: Report from Study
  Country: KR (occurrence: KR)
  Receive Date: 20170214
  Receipt Date: 20170214
  Transmission Date: 20170428
  Serious: Yes (Other)
  Sender: FDA-Public Use
  Company Number: KR-GILEAD-2017-0257813

PATIENT
  Age: 42 Year
  Sex: Male

DRUGS (3)
  1. RANOLAZINE [Suspect]
     Active Substance: RANOLAZINE
     Dosage: 375 MG, QD
     Route: 048
     Dates: start: 20160411, end: 20160411
  2. RANOLAZINE [Suspect]
     Active Substance: RANOLAZINE
     Dosage: 375 MG, QD
     Route: 048
     Dates: start: 20160406, end: 20160406
  3. RANOLAZINE [Suspect]
     Active Substance: RANOLAZINE
     Indication: PRODUCT USED FOR UNKNOWN INDICATION
     Dosage: 375 MG, BID
     Route: 048
     Dates: start: 20160408, end: 20160410

REACTIONS (2)
  - Urinary retention [Recovered/Resolved]
  - Chest discomfort [Recovered/Resolved]

NARRATIVE: CASE EVENT DATE: 20160408
